FAERS Safety Report 6733953-7 (Version None)
Quarter: 2010Q2

REPORT INFORMATION
  Report Type: 
  Country: None (occurrence: None)
  Receive Date: 20100520
  Receipt Date: 20100506
  Transmission Date: 20101027
  Serious: Yes (Hospitalization)
  Sender: FDA-Public Use
  Company Number: DE-WYE-H15067710

PATIENT
  Age: 3 Year
  Sex: Male
  Weight: 17.4 kg

DRUGS (8)
  1. PANTOPRAZOLE SODIUM [Suspect]
     Indication: ABDOMINAL PAIN
     Route: 042
     Dates: start: 20100203, end: 20100207
  2. FORTUM [Concomitant]
     Indication: SYSTEMIC INFLAMMATORY RESPONSE SYNDROME
     Route: 042
     Dates: start: 20100203, end: 20100211
  3. ALBUMIN (HUMAN) [Concomitant]
     Dosage: UNKNOWN
     Route: 042
  4. DIPYRONE TAB [Concomitant]
     Dosage: UNKNOWN
     Route: 048
  5. FENISTIL [Concomitant]
     Dosage: UNKNOWN
     Route: 048
  6. HEPARIN [Concomitant]
     Dosage: UNKNOWN
     Route: 042
  7. TOBRAMYCIN [Concomitant]
     Indication: SYSTEMIC INFLAMMATORY RESPONSE SYNDROME
     Route: 042
     Dates: start: 20100203, end: 20100211
  8. CLONT [Concomitant]
     Indication: SYSTEMIC INFLAMMATORY RESPONSE SYNDROME
     Route: 042
     Dates: start: 20100203, end: 20100209

REACTIONS (1)
  - HYPERTRIGLYCERIDAEMIA [None]
